FAERS Safety Report 8521642-8 (Version None)
Quarter: 2012Q3

REPORT INFORMATION
  Report Type: 
  Country: None (occurrence: None)
  Receive Date: 20120719
  Receipt Date: 20120717
  Transmission Date: 20120928
  Serious: Yes (Hospitalization)
  Sender: FDA-Public Use
  Company Number: PHHY2012NL061427

PATIENT
  Sex: Male

DRUGS (7)
  1. PANTOPRAZOLE [Concomitant]
  2. ZOMETA [Suspect]
     Dosage: 4 MG, ONCE PER 28 DAYS
     Route: 042
     Dates: start: 20100601
  3. PREDNISONE TAB [Concomitant]
  4. ZOMETA [Suspect]
     Dosage: 4 MG, ONCE PER 28 DAYS
     Route: 042
     Dates: start: 20120619
  5. SIMVASTATIN [Concomitant]
     Dosage: 20 MG, UNK
  6. ZOMETA [Suspect]
     Indication: PROSTATE CANCER METASTATIC
     Dosage: 4 MG, ONCE PER 28 DAYS
     Route: 042
  7. ZOMETA [Suspect]
     Dosage: 4 MG, ONCE PER 28 DAYS
     Route: 042
     Dates: start: 20120717

REACTIONS (3)
  - MUSCULOSKELETAL DISORDER [None]
  - SPEECH DISORDER [None]
  - TRANSIENT ISCHAEMIC ATTACK [None]
